FAERS Safety Report 7365648-3 (Version None)
Quarter: 2011Q1

REPORT INFORMATION
  Report Type: 
  Country: None (occurrence: None)
  Receive Date: 20110316
  Receipt Date: 20110316
  Transmission Date: 20110831
  Serious: Yes (Disabling)
  Sender: FDA-Public Use
  Company Number: None

PATIENT
  Sex: Female
  Weight: 75.7507 kg

DRUGS (1)
  1. FOSAMAX [Suspect]
     Indication: OSTEOPENIA
     Dosage: 35MGM. 1X WEEK ORAL
     Route: 048
     Dates: start: 20000419, end: 20101001

REACTIONS (2)
  - PAIN IN JAW [None]
  - OSTEONECROSIS OF JAW [None]
